FAERS Safety Report 9135658 (Version 1)
Quarter: 2013Q1

REPORT INFORMATION
  Report Type: Spontaneous
  Country: US (occurrence: US)
  Receive Date: 20130304
  Receipt Date: 20130304
  Transmission Date: 20140127
  Serious: No
  Sender: FDA-Public Use
  Company Number: US-ENDO PHARMACEUTICALS INC.-ENDC20110209

PATIENT
  Sex: Female

DRUGS (1)
  1. ENDOCET [Suspect]
     Indication: PRODUCT USED FOR UNKNOWN INDICATION
     Dosage: 40MG/1300MG
     Route: 048
     Dates: start: 20110719

REACTIONS (2)
  - Dark circles under eyes [Not Recovered/Not Resolved]
  - Headache [Not Recovered/Not Resolved]
